FAERS Safety Report 8107922-9 (Version None)
Quarter: 2012Q1

REPORT INFORMATION
  Report Type: 
  Country: None (occurrence: None)
  Receive Date: 20120202
  Receipt Date: 20120127
  Transmission Date: 20120608
  Serious: No
  Sender: FDA-Public Use
  Company Number: US-MERCK-1111USA03563

PATIENT
  Age: 11 Year
  Sex: Female

DRUGS (2)
  1. SINGULAIR [Suspect]
     Indication: ASTHMA
     Route: 048
     Dates: start: 20111011, end: 20111103
  2. ALBUTEROL [Concomitant]
     Route: 065

REACTIONS (15)
  - IMPULSIVE BEHAVIOUR [None]
  - HOSTILITY [None]
  - SUICIDAL IDEATION [None]
  - DEPRESSION [None]
  - NIGHTMARE [None]
  - AFFECTIVE DISORDER [None]
  - ARTHRALGIA [None]
  - FATIGUE [None]
  - HALLUCINATION [None]
  - ANGER [None]
  - COSTOCHONDRITIS [None]
  - MYDRIASIS [None]
  - VIOLENCE-RELATED SYMPTOM [None]
  - SELF-INJURIOUS IDEATION [None]
  - HEADACHE [None]
